FAERS Safety Report 22728081 (Version 2)
Quarter: 2023Q4

REPORT INFORMATION
  Report Type: Spontaneous
  Country: US (occurrence: US)
  Receive Date: 20230720
  Receipt Date: 20231026
  Transmission Date: 20240109
  Serious: No
  Sender: FDA-Public Use
  Company Number: US-SA-SAC20230714000955

PATIENT
  Age: 25 Year
  Sex: Female

DRUGS (1)
  1. DUPIXENT [Suspect]
     Active Substance: DUPILUMAB
     Indication: Dermatitis atopic
     Dosage: 300 MG; FREQUENCY: OTHER
     Route: 058

REACTIONS (6)
  - Weight increased [Unknown]
  - Rash pruritic [Unknown]
  - Rash erythematous [Unknown]
  - Swelling face [Unknown]
  - Injection site pain [Unknown]
  - Injection site bruising [Unknown]
